FAERS Safety Report 5206410-7 (Version None)
Quarter: 2006Q4

REPORT INFORMATION
  Report Type: 
  Country: None (occurrence: None)
  Receive Date: 20061026
  Receipt Date: 20060825
  Transmission Date: 20070319
  Serious: Yes (Other)
  Sender: FDA-Public Use
  Company Number: 2006104941

PATIENT
  Age: 83 Year
  Weight: 177 kg

DRUGS (8)
  1. LYRICA [Suspect]
     Indication: NEURALGIA
     Dosage: 100 MG (50 MG, 2 IN 1 D)
     Dates: start: 20060823
  2. ASPIRIN [Concomitant]
  3. ATENOLOL [Concomitant]
  4. PRINZIDE [Concomitant]
  5. SYNTHROID [Concomitant]
  6. NEXIUM [Concomitant]
  7. PROSCAR [Concomitant]
  8. LANTUS [Concomitant]

REACTIONS (1)
  - VISION BLURRED [None]
